FAERS Safety Report 13030235 (Version 3)
Quarter: 2017Q2

REPORT INFORMATION
  Report Type: Report from Study
  Country: SI (occurrence: SI)
  Receive Date: 20161215
  Receipt Date: 20170418
  Transmission Date: 20170830
  Serious: Yes (Death, Hospitalization)
  Sender: FDA-Public Use
  Company Number: SI-TOLMAR, INC.-2016SI013370

PATIENT
  Age: 82 Year
  Sex: Male
  Weight: 100 kg

DRUGS (4)
  1. BICALUTAMIDE. [Concomitant]
     Active Substance: BICALUTAMIDE
     Dosage: UNK
     Dates: start: 20110711
  2. ELIGARD [Suspect]
     Active Substance: LEUPROLIDE ACETATE
     Indication: PROSTATE CANCER
     Dosage: 45 MG, UNK
     Route: 058
     Dates: start: 20150713
  3. ELIGARD [Suspect]
     Active Substance: LEUPROLIDE ACETATE
     Dosage: 45 MG, UNK
     Route: 058
     Dates: start: 20151111
  4. ELIGARD [Suspect]
     Active Substance: LEUPROLIDE ACETATE
     Dosage: 45 MG, UNK
     Route: 058
     Dates: start: 20160113

REACTIONS (4)
  - Urosepsis [Fatal]
  - Staphylococcal sepsis [Fatal]
  - Off label use [Unknown]
  - Cardiac failure [Fatal]

NARRATIVE: CASE EVENT DATE: 20160128
